FAERS Safety Report 24070918 (Version 1)
Quarter: 2024Q3

REPORT INFORMATION
  Report Type: Report from Study
  Country: DK (occurrence: DK)
  Receive Date: 20240710
  Receipt Date: 20240710
  Transmission Date: 20241017
  Serious: No
  Sender: ROCHE
  Company Number: DK-ROCHE-3551478

PATIENT
  Age: 60 Year
  Sex: Male

DRUGS (1)
  1. ALECTINIB [Suspect]
     Active Substance: ALECTINIB
     Indication: Product used for unknown indication
     Dosage: 600 MGX2?ON 08/MAY/2023 STOPPED DUE TO OTHER CANCER
     Route: 065
     Dates: start: 20210122

REACTIONS (1)
  - Blood creatine phosphokinase increased [Recovered/Resolved]

NARRATIVE: CASE EVENT DATE: 20210501
